FAERS Safety Report 23276568 (Version 1)
Quarter: 2023Q4

REPORT INFORMATION
  Report Type: Spontaneous
  Country: None (occurrence: CA)
  Receive Date: 20231208
  Receipt Date: 20231208
  Transmission Date: 20240109
  Serious: Yes (Hospitalization, Other)
  Sender: FDA-Public Use
  Company Number: CA-B.Braun Medical Inc.-2149142

PATIENT
  Age: 67 Year
  Sex: Female

DRUGS (3)
  1. HEPARIN SODIUM IN DEXTROSE [Suspect]
     Active Substance: HEPARIN SODIUM
     Indication: Pulmonary embolism
  2. FRAGMIN [Suspect]
     Active Substance: DALTEPARIN SODIUM
  3. IMBRUVICA [Suspect]
     Active Substance: IBRUTINIB

REACTIONS (3)
  - Cerebral haemorrhage [None]
  - Pulmonary embolism [None]
  - Drug ineffective [None]
